FAERS Safety Report 20873996 (Version 17)
Quarter: 2025Q3

REPORT INFORMATION
  Report Type: Spontaneous
  Country: EU (occurrence: EU)
  Receive Date: 20220525
  Receipt Date: 20250814
  Transmission Date: 20251021
  Serious: Yes (Hospitalization, Other)
  Sender: MYLAN
  Company Number: EU-LESVI-2022002012

PATIENT
  Age: 75 Year
  Sex: Male

DRUGS (148)
  1. METFORMIN [Interacting]
     Active Substance: METFORMIN HYDROCHLORIDE
     Indication: Diabetes mellitus
     Dosage: 1 GRAM, QOD (1/0/1)
     Route: 048
  2. METFORMIN [Interacting]
     Active Substance: METFORMIN HYDROCHLORIDE
     Dosage: 1 GRAM, QOD (1/0/1)
  3. METFORMIN [Interacting]
     Active Substance: METFORMIN HYDROCHLORIDE
     Dosage: 1 GRAM, QOD (1/0/1)
  4. METFORMIN [Interacting]
     Active Substance: METFORMIN HYDROCHLORIDE
     Dosage: 1 GRAM, QOD (1/0/1)
     Route: 048
  5. METFORMIN [Interacting]
     Active Substance: METFORMIN HYDROCHLORIDE
     Dosage: 1 GRAM, BID (1/0/1)
     Route: 065
  6. METFORMIN [Interacting]
     Active Substance: METFORMIN HYDROCHLORIDE
     Dosage: 1 GRAM, BID (1/0/1)
  7. METFORMIN [Interacting]
     Active Substance: METFORMIN HYDROCHLORIDE
     Dosage: 1 GRAM, BID (1/0/1)
  8. METFORMIN [Interacting]
     Active Substance: METFORMIN HYDROCHLORIDE
     Dosage: 1 GRAM, BID (1/0/1)
     Route: 065
  9. METFORMIN [Interacting]
     Active Substance: METFORMIN HYDROCHLORIDE
     Dosage: 850 MILLIGRAM, BID (1/0/1)
  10. METFORMIN [Interacting]
     Active Substance: METFORMIN HYDROCHLORIDE
     Dosage: 850 MILLIGRAM, BID (1/0/1)
  11. METFORMIN [Interacting]
     Active Substance: METFORMIN HYDROCHLORIDE
     Dosage: 850 MILLIGRAM, BID (1/0/1)
     Route: 065
  12. METFORMIN [Interacting]
     Active Substance: METFORMIN HYDROCHLORIDE
     Dosage: 850 MILLIGRAM, BID (1/0/1)
     Route: 065
  13. METFORMIN [Interacting]
     Active Substance: METFORMIN HYDROCHLORIDE
  14. METFORMIN [Interacting]
     Active Substance: METFORMIN HYDROCHLORIDE
  15. METFORMIN [Interacting]
     Active Substance: METFORMIN HYDROCHLORIDE
     Route: 065
  16. METFORMIN [Interacting]
     Active Substance: METFORMIN HYDROCHLORIDE
     Route: 065
  17. CLOPIDOGREL [Interacting]
     Active Substance: CLOPIDOGREL BISULFATE
     Indication: Cardiovascular disorder
     Dosage: 75 MILLIGRAM, QD
     Route: 048
  18. CLOPIDOGREL [Interacting]
     Active Substance: CLOPIDOGREL BISULFATE
     Indication: Cerebrovascular accident
     Dosage: 75 MILLIGRAM, QD
  19. CLOPIDOGREL [Interacting]
     Active Substance: CLOPIDOGREL BISULFATE
     Indication: Cardiac disorder
     Dosage: 75 MILLIGRAM, QD
  20. CLOPIDOGREL [Interacting]
     Active Substance: CLOPIDOGREL BISULFATE
     Dosage: 75 MILLIGRAM, QD
     Route: 048
  21. CLOPIDOGREL [Interacting]
     Active Substance: CLOPIDOGREL BISULFATE
     Route: 065
  22. CLOPIDOGREL [Interacting]
     Active Substance: CLOPIDOGREL BISULFATE
  23. CLOPIDOGREL [Interacting]
     Active Substance: CLOPIDOGREL BISULFATE
  24. CLOPIDOGREL [Interacting]
     Active Substance: CLOPIDOGREL BISULFATE
     Route: 065
  25. CLOPIDOGREL [Interacting]
     Active Substance: CLOPIDOGREL BISULFATE
     Dosage: 75 MILLIGRAM, QD (1/0/0)
  26. CLOPIDOGREL [Interacting]
     Active Substance: CLOPIDOGREL BISULFATE
     Dosage: 75 MILLIGRAM, QD (1/0/0)
  27. CLOPIDOGREL [Interacting]
     Active Substance: CLOPIDOGREL BISULFATE
     Dosage: 75 MILLIGRAM, QD (1/0/0)
     Route: 065
  28. CLOPIDOGREL [Interacting]
     Active Substance: CLOPIDOGREL BISULFATE
     Dosage: 75 MILLIGRAM, QD (1/0/0)
     Route: 065
  29. CLOPIDOGREL [Interacting]
     Active Substance: CLOPIDOGREL BISULFATE
     Dosage: 1 DOSAGE FORM, QD
  30. CLOPIDOGREL [Interacting]
     Active Substance: CLOPIDOGREL BISULFATE
     Dosage: 1 DOSAGE FORM, QD
  31. CLOPIDOGREL [Interacting]
     Active Substance: CLOPIDOGREL BISULFATE
     Dosage: 1 DOSAGE FORM, QD
     Route: 065
  32. CLOPIDOGREL [Interacting]
     Active Substance: CLOPIDOGREL BISULFATE
     Dosage: 1 DOSAGE FORM, QD
     Route: 065
  33. PANTOPRAZOLE [Interacting]
     Active Substance: PANTOPRAZOLE
     Indication: Abdominal pain upper
     Dosage: 40 MILLIGRAM, QD (1/0/0)
  34. PANTOPRAZOLE [Interacting]
     Active Substance: PANTOPRAZOLE
     Indication: Gastrointestinal disorder prophylaxis
     Dosage: 40 MILLIGRAM, QD (1/0/0)
  35. PANTOPRAZOLE [Interacting]
     Active Substance: PANTOPRAZOLE
     Indication: Gastrointestinal disorder
     Dosage: 40 MILLIGRAM, QD (1/0/0)
     Route: 048
  36. PANTOPRAZOLE [Interacting]
     Active Substance: PANTOPRAZOLE
     Dosage: 40 MILLIGRAM, QD (1/0/0)
     Route: 048
  37. PANTOPRAZOLE [Interacting]
     Active Substance: PANTOPRAZOLE
     Dosage: 1 DOSAGE FORM, QD (1/0/0)
  38. PANTOPRAZOLE [Interacting]
     Active Substance: PANTOPRAZOLE
     Dosage: 1 DOSAGE FORM, QD (1/0/0)
  39. PANTOPRAZOLE [Interacting]
     Active Substance: PANTOPRAZOLE
     Dosage: 1 DOSAGE FORM, QD (1/0/0)
     Route: 065
  40. PANTOPRAZOLE [Interacting]
     Active Substance: PANTOPRAZOLE
     Dosage: 1 DOSAGE FORM, QD (1/0/0)
     Route: 065
  41. PANTOPRAZOLE [Interacting]
     Active Substance: PANTOPRAZOLE
  42. PANTOPRAZOLE [Interacting]
     Active Substance: PANTOPRAZOLE
     Route: 065
  43. PANTOPRAZOLE [Interacting]
     Active Substance: PANTOPRAZOLE
  44. PANTOPRAZOLE [Interacting]
     Active Substance: PANTOPRAZOLE
     Route: 065
  45. REPAGLINIDE [Interacting]
     Active Substance: REPAGLINIDE
     Indication: Diabetes mellitus
     Dosage: UNK, Q8H, UNK UNK, TID ( 1/1/1)
     Route: 065
  46. REPAGLINIDE [Interacting]
     Active Substance: REPAGLINIDE
     Dosage: UNK, Q8H, UNK UNK, TID ( 1/1/1)
  47. REPAGLINIDE [Interacting]
     Active Substance: REPAGLINIDE
     Dosage: UNK, Q8H, UNK UNK, TID ( 1/1/1)
  48. REPAGLINIDE [Interacting]
     Active Substance: REPAGLINIDE
     Dosage: UNK, Q8H, UNK UNK, TID ( 1/1/1)
     Route: 065
  49. REPAGLINIDE [Interacting]
     Active Substance: REPAGLINIDE
     Route: 065
  50. REPAGLINIDE [Interacting]
     Active Substance: REPAGLINIDE
  51. REPAGLINIDE [Interacting]
     Active Substance: REPAGLINIDE
  52. REPAGLINIDE [Interacting]
     Active Substance: REPAGLINIDE
     Route: 065
  53. REPAGLINIDE [Interacting]
     Active Substance: REPAGLINIDE
     Dosage: Q8H, 2 MILLIGRAM (2/2/1)
     Route: 048
  54. REPAGLINIDE [Interacting]
     Active Substance: REPAGLINIDE
     Dosage: Q8H, 2 MILLIGRAM (2/2/1)
     Route: 048
  55. REPAGLINIDE [Interacting]
     Active Substance: REPAGLINIDE
     Dosage: Q8H, 2 MILLIGRAM (2/2/1)
  56. REPAGLINIDE [Interacting]
     Active Substance: REPAGLINIDE
     Dosage: Q8H, 2 MILLIGRAM (2/2/1)
  57. VILDAGLIPTIN [Interacting]
     Active Substance: VILDAGLIPTIN
     Indication: Diabetes mellitus
     Dosage: 50 MILLIGRAM, QOD (0/1/1)
  58. VILDAGLIPTIN [Interacting]
     Active Substance: VILDAGLIPTIN
     Dosage: 50 MILLIGRAM, QOD (0/1/1)
  59. VILDAGLIPTIN [Interacting]
     Active Substance: VILDAGLIPTIN
     Dosage: 50 MILLIGRAM, QOD (0/1/1)
     Route: 048
  60. VILDAGLIPTIN [Interacting]
     Active Substance: VILDAGLIPTIN
     Dosage: 50 MILLIGRAM, QOD (0/1/1)
     Route: 048
  61. VILDAGLIPTIN [Interacting]
     Active Substance: VILDAGLIPTIN
     Dosage: 50 MG, BID (0/1/1)
  62. VILDAGLIPTIN [Interacting]
     Active Substance: VILDAGLIPTIN
     Dosage: 50 MG, BID (0/1/1)
  63. VILDAGLIPTIN [Interacting]
     Active Substance: VILDAGLIPTIN
     Dosage: 50 MG, BID (0/1/1)
     Route: 065
  64. VILDAGLIPTIN [Interacting]
     Active Substance: VILDAGLIPTIN
     Dosage: 50 MG, BID (0/1/1)
     Route: 065
  65. PREDNISONE [Interacting]
     Active Substance: PREDNISONE
     Indication: Inflammatory bowel disease
     Dosage: UNK UNK, BID
  66. PREDNISONE [Interacting]
     Active Substance: PREDNISONE
     Indication: Gastrointestinal inflammation
     Dosage: UNK UNK, BID
  67. PREDNISONE [Interacting]
     Active Substance: PREDNISONE
     Dosage: UNK UNK, BID
     Route: 048
  68. PREDNISONE [Interacting]
     Active Substance: PREDNISONE
     Dosage: UNK UNK, BID
     Route: 048
  69. PREDNISONE [Interacting]
     Active Substance: PREDNISONE
  70. PREDNISONE [Interacting]
     Active Substance: PREDNISONE
  71. PREDNISONE [Interacting]
     Active Substance: PREDNISONE
     Route: 065
  72. PREDNISONE [Interacting]
     Active Substance: PREDNISONE
     Route: 065
  73. ACETAMINOPHEN [Concomitant]
     Active Substance: ACETAMINOPHEN
     Indication: Pain
  74. ACETAMINOPHEN [Concomitant]
     Active Substance: ACETAMINOPHEN
     Route: 048
  75. ACETAMINOPHEN [Concomitant]
     Active Substance: ACETAMINOPHEN
     Route: 048
  76. ACETAMINOPHEN [Concomitant]
     Active Substance: ACETAMINOPHEN
  77. DONEPEZIL [Concomitant]
     Active Substance: DONEPEZIL
     Indication: Dementia
     Dosage: 10 MG, QD (1/0/0, ONE YEAR AGO)
  78. DONEPEZIL [Concomitant]
     Active Substance: DONEPEZIL
     Dosage: 10 MG, QD (1/0/0, ONE YEAR AGO)
     Route: 048
  79. DONEPEZIL [Concomitant]
     Active Substance: DONEPEZIL
     Dosage: 10 MG, QD (1/0/0, ONE YEAR AGO)
     Route: 048
  80. DONEPEZIL [Concomitant]
     Active Substance: DONEPEZIL
     Dosage: 10 MG, QD (1/0/0, ONE YEAR AGO)
  81. Calcio + vit d3 [Concomitant]
     Indication: Steroid therapy
     Dosage: UNK, QD (1/0/0, THREEMONTHS AGO)
     Route: 065
  82. Calcio + vit d3 [Concomitant]
     Indication: Adrenocortical steroid therapy
     Dosage: UNK, QD (1/0/0, THREEMONTHS AGO)
  83. Calcio + vit d3 [Concomitant]
     Indication: Steroid activity
     Dosage: UNK, QD (1/0/0, THREEMONTHS AGO)
  84. Calcio + vit d3 [Concomitant]
     Indication: Osteoporosis prophylaxis
     Dosage: UNK, QD (1/0/0, THREEMONTHS AGO)
     Route: 065
  85. Calcio + vit d3 [Concomitant]
     Dosage: QD (1000MG/800UI ),1/0/0, FOR 3 MONTHS
     Route: 048
  86. Calcio + vit d3 [Concomitant]
     Dosage: QD (1000MG/800UI ),1/0/0, FOR 3 MONTHS
  87. Calcio + vit d3 [Concomitant]
     Dosage: QD (1000MG/800UI ),1/0/0, FOR 3 MONTHS
  88. Calcio + vit d3 [Concomitant]
     Dosage: QD (1000MG/800UI ),1/0/0, FOR 3 MONTHS
     Route: 048
  89. Calcio + vit d3 [Concomitant]
     Dosage: 1 DOSAGE FORM, QD (1/0/0)
     Route: 065
  90. Calcio + vit d3 [Concomitant]
     Dosage: 1 DOSAGE FORM, QD (1/0/0)
     Route: 065
  91. Calcio + vit d3 [Concomitant]
     Dosage: 1 DOSAGE FORM, QD (1/0/0)
  92. Calcio + vit d3 [Concomitant]
     Dosage: 1 DOSAGE FORM, QD (1/0/0)
  93. FOLIC ACID [Concomitant]
     Active Substance: FOLIC ACID
     Indication: Folate deficiency
     Dosage: 5 MILLIGRAM, QD (0/1/0)
     Route: 048
  94. FOLIC ACID [Concomitant]
     Active Substance: FOLIC ACID
     Indication: Hypovitaminosis
     Dosage: 5 MILLIGRAM, QD (0/1/0)
  95. FOLIC ACID [Concomitant]
     Active Substance: FOLIC ACID
     Dosage: 5 MILLIGRAM, QD (0/1/0)
  96. FOLIC ACID [Concomitant]
     Active Substance: FOLIC ACID
     Dosage: 5 MILLIGRAM, QD (0/1/0)
     Route: 048
  97. FOLIC ACID [Concomitant]
     Active Substance: FOLIC ACID
     Route: 065
  98. FOLIC ACID [Concomitant]
     Active Substance: FOLIC ACID
  99. FOLIC ACID [Concomitant]
     Active Substance: FOLIC ACID
  100. FOLIC ACID [Concomitant]
     Active Substance: FOLIC ACID
     Route: 065
  101. FOLIC ACID [Concomitant]
     Active Substance: FOLIC ACID
     Dosage: 1 DOSAGE FORM, QD (0/1/0)
     Route: 065
  102. FOLIC ACID [Concomitant]
     Active Substance: FOLIC ACID
     Dosage: 1 DOSAGE FORM, QD (0/1/0)
     Route: 065
  103. FOLIC ACID [Concomitant]
     Active Substance: FOLIC ACID
     Dosage: 1 DOSAGE FORM, QD (0/1/0)
  104. FOLIC ACID [Concomitant]
     Active Substance: FOLIC ACID
     Dosage: 1 DOSAGE FORM, QD (0/1/0)
  105. METFORMIN [Concomitant]
     Active Substance: METFORMIN HYDROCHLORIDE
     Indication: Folate deficiency
     Route: 065
  106. METFORMIN [Concomitant]
     Active Substance: METFORMIN HYDROCHLORIDE
  107. METFORMIN [Concomitant]
     Active Substance: METFORMIN HYDROCHLORIDE
  108. METFORMIN [Concomitant]
     Active Substance: METFORMIN HYDROCHLORIDE
     Route: 065
  109. METFORMIN [Concomitant]
     Active Substance: METFORMIN HYDROCHLORIDE
     Route: 048
  110. METFORMIN [Concomitant]
     Active Substance: METFORMIN HYDROCHLORIDE
  111. METFORMIN [Concomitant]
     Active Substance: METFORMIN HYDROCHLORIDE
  112. METFORMIN [Concomitant]
     Active Substance: METFORMIN HYDROCHLORIDE
     Route: 048
  113. METFORMIN [Concomitant]
     Active Substance: METFORMIN HYDROCHLORIDE
     Dosage: 850 MILLIGRAM, QD
     Route: 065
  114. METFORMIN [Concomitant]
     Active Substance: METFORMIN HYDROCHLORIDE
     Dosage: 850 MILLIGRAM, QD
     Route: 065
  115. METFORMIN [Concomitant]
     Active Substance: METFORMIN HYDROCHLORIDE
     Dosage: 850 MILLIGRAM, QD
  116. METFORMIN [Concomitant]
     Active Substance: METFORMIN HYDROCHLORIDE
     Dosage: 850 MILLIGRAM, QD
  117. PREDNISONE [Concomitant]
     Active Substance: PREDNISONE
     Indication: Inflammatory bowel disease
     Dosage: UNK, BID
  118. PREDNISONE [Concomitant]
     Active Substance: PREDNISONE
     Indication: Gastrointestinal inflammation
     Dosage: UNK, BID
     Route: 065
  119. PREDNISONE [Concomitant]
     Active Substance: PREDNISONE
     Dosage: UNK, BID
     Route: 065
  120. PREDNISONE [Concomitant]
     Active Substance: PREDNISONE
     Dosage: UNK, BID
  121. PANTOPRAZOLE SODIUM [Concomitant]
     Active Substance: PANTOPRAZOLE SODIUM
     Indication: Gastrointestinal disorder prophylaxis
     Dosage: 40 MILLIGRAM, QD (1/0/0)
  122. PANTOPRAZOLE SODIUM [Concomitant]
     Active Substance: PANTOPRAZOLE SODIUM
     Indication: Reflux gastritis
     Dosage: 40 MILLIGRAM, QD (1/0/0)
     Route: 065
  123. PANTOPRAZOLE SODIUM [Concomitant]
     Active Substance: PANTOPRAZOLE SODIUM
     Dosage: 40 MILLIGRAM, QD (1/0/0)
     Route: 065
  124. PANTOPRAZOLE SODIUM [Concomitant]
     Active Substance: PANTOPRAZOLE SODIUM
     Dosage: 40 MILLIGRAM, QD (1/0/0)
  125. REPAGLINIDE [Concomitant]
     Active Substance: REPAGLINIDE
     Indication: Diabetes mellitus
     Dosage: 2 MILLIGRAM, TID (2/2/1)
  126. REPAGLINIDE [Concomitant]
     Active Substance: REPAGLINIDE
     Dosage: 2 MILLIGRAM, TID (2/2/1)
  127. REPAGLINIDE [Concomitant]
     Active Substance: REPAGLINIDE
     Dosage: 2 MILLIGRAM, TID (2/2/1)
     Route: 065
  128. REPAGLINIDE [Concomitant]
     Active Substance: REPAGLINIDE
     Dosage: 2 MILLIGRAM, TID (2/2/1)
     Route: 065
  129. REPAGLINIDE [Concomitant]
     Active Substance: REPAGLINIDE
  130. REPAGLINIDE [Concomitant]
     Active Substance: REPAGLINIDE
  131. REPAGLINIDE [Concomitant]
     Active Substance: REPAGLINIDE
     Route: 065
  132. REPAGLINIDE [Concomitant]
     Active Substance: REPAGLINIDE
     Route: 065
  133. VILDAGLIPTIN [Concomitant]
     Active Substance: VILDAGLIPTIN
     Indication: Diabetes mellitus
     Dosage: UNK, BID,UNK UNK, BID (0-1-1, YEARS)
  134. VILDAGLIPTIN [Concomitant]
     Active Substance: VILDAGLIPTIN
     Dosage: UNK, BID,UNK UNK, BID (0-1-1, YEARS)
     Route: 065
  135. VILDAGLIPTIN [Concomitant]
     Active Substance: VILDAGLIPTIN
     Dosage: UNK, BID,UNK UNK, BID (0-1-1, YEARS)
     Route: 065
  136. VILDAGLIPTIN [Concomitant]
     Active Substance: VILDAGLIPTIN
     Dosage: UNK, BID,UNK UNK, BID (0-1-1, YEARS)
  137. VILDAGLIPTIN [Concomitant]
     Active Substance: VILDAGLIPTIN
     Dosage: 1 DOSAGE FORM, Q2W (0/1/1)
     Route: 065
  138. VILDAGLIPTIN [Concomitant]
     Active Substance: VILDAGLIPTIN
     Dosage: 1 DOSAGE FORM, Q2W (0/1/1)
     Route: 065
  139. VILDAGLIPTIN [Concomitant]
     Active Substance: VILDAGLIPTIN
     Dosage: 1 DOSAGE FORM, Q2W (0/1/1)
  140. VILDAGLIPTIN [Concomitant]
     Active Substance: VILDAGLIPTIN
     Dosage: 1 DOSAGE FORM, Q2W (0/1/1)
  141. VILDAGLIPTIN [Concomitant]
     Active Substance: VILDAGLIPTIN
     Dosage: 50 MILLIGRAM, DAILY
  142. VILDAGLIPTIN [Concomitant]
     Active Substance: VILDAGLIPTIN
     Dosage: 50 MILLIGRAM, DAILY
     Route: 065
  143. VILDAGLIPTIN [Concomitant]
     Active Substance: VILDAGLIPTIN
     Dosage: 50 MILLIGRAM, DAILY
  144. VILDAGLIPTIN [Concomitant]
     Active Substance: VILDAGLIPTIN
     Dosage: 50 MILLIGRAM, DAILY
     Route: 065
  145. VITAMIN D3 [Concomitant]
     Active Substance: CHOLECALCIFEROL
     Indication: Diabetes mellitus
  146. VITAMIN D3 [Concomitant]
     Active Substance: CHOLECALCIFEROL
     Route: 065
  147. VITAMIN D3 [Concomitant]
     Active Substance: CHOLECALCIFEROL
     Route: 065
  148. VITAMIN D3 [Concomitant]
     Active Substance: CHOLECALCIFEROL

REACTIONS (12)
  - Flatulence [Recovering/Resolving]
  - Anal incontinence [Recovering/Resolving]
  - Crohn^s disease [Unknown]
  - Hyperglycaemia [Recovering/Resolving]
  - Blood glucose increased [Recovering/Resolving]
  - Diarrhoea [Recovering/Resolving]
  - Abdominal pain [Recovering/Resolving]
  - Drug interaction [Unknown]
  - Blood triglycerides increased [Unknown]
  - Glycosylated haemoglobin increased [Unknown]
  - Product prescribing issue [Recovering/Resolving]
  - Contraindication to medical treatment [Recovering/Resolving]
